FAERS Safety Report 7430327-0 (Version None)
Quarter: 2011Q2

REPORT INFORMATION
  Report Type: 
  Country: None (occurrence: None)
  Receive Date: 20110421
  Receipt Date: 20100308
  Transmission Date: 20111010
  Serious: No
  Sender: FDA-Public Use
  Company Number: US-ASTRAZENECA-2010SE10096

PATIENT
  Sex: Female

DRUGS (4)
  1. PRAVASTATIN [Concomitant]
  2. TOPROL-XL [Suspect]
     Route: 048
     Dates: start: 20100101, end: 20100101
  3. TOPROL-XL [Suspect]
     Dosage: GENERIC
     Route: 065
     Dates: start: 20080101, end: 20090101
  4. TOPROL-XL [Suspect]
     Route: 048
     Dates: start: 20100201, end: 20100201

REACTIONS (2)
  - SINUSITIS [None]
  - SWELLING FACE [None]
